FAERS Safety Report 6272330-2 (Version None)
Quarter: 2009Q3

REPORT INFORMATION
  Report Type: 
  Country: None (occurrence: None)
  Receive Date: 20090717
  Receipt Date: 20090708
  Transmission Date: 20100115
  Serious: Yes (Death, Hospitalization, Other)
  Sender: FDA-Public Use
  Company Number: JP-ROCHE-643453

PATIENT
  Age: 54 Year
  Sex: Male

DRUGS (6)
  1. CELLCEPT [Suspect]
     Route: 048
  2. CELLCEPT [Suspect]
     Route: 048
     Dates: start: 20061201
  3. TACROLIMUS [Concomitant]
     Route: 048
     Dates: start: 20061201
  4. TACROLIMUS [Concomitant]
     Route: 048
  5. MEDROL [Concomitant]
     Route: 048
     Dates: start: 20061201
  6. CYCLOSPORINE [Concomitant]
     Dosage: FORM: ORAL FORMULATION NOT OTHERWISE SPECIFIED
     Route: 048

REACTIONS (7)
  - ABDOMINAL ABSCESS [None]
  - DIARRHOEA [None]
  - MULTI-ORGAN FAILURE [None]
  - RENAL CANCER RECURRENT [None]
  - RENAL IMPAIRMENT [None]
  - SEPSIS [None]
  - SMALL INTESTINAL PERFORATION [None]
